FAERS Safety Report 13106831 (Version 1)
Quarter: 2017Q1

REPORT INFORMATION
  Report Type: Spontaneous
  Country: US (occurrence: US)
  Receive Date: 20170111
  Receipt Date: 20170111
  Transmission Date: 20170428
  Serious: No
  Sender: FDA-Public Use
  Company Number: US-TEIKOKU PHARMA USA-TPU2016-00890

PATIENT
  Sex: Female
  Weight: 70.37 kg

DRUGS (10)
  1. AMMONIUM LACTATE. [Concomitant]
     Active Substance: AMMONIUM LACTATE
  2. NAPROXEN SODIUM. [Concomitant]
     Active Substance: NAPROXEN SODIUM
  3. PROAIR HFA [Concomitant]
     Active Substance: ALBUTEROL SULFATE
  4. TRAMADOL. [Concomitant]
     Active Substance: TRAMADOL
  5. METHOCARBAMOL. [Concomitant]
     Active Substance: METHOCARBAMOL
  6. LIDODERM [Suspect]
     Active Substance: LIDOCAINE
  7. TIZANIDINE. [Concomitant]
     Active Substance: TIZANIDINE
  8. FLUTICASONE. [Concomitant]
     Active Substance: FLUTICASONE
  9. CYCLOBENZAPRINE [Concomitant]
     Active Substance: CYCLOBENZAPRINE
  10. PREGABALIN. [Concomitant]
     Active Substance: PREGABALIN

REACTIONS (1)
  - Confusional state [Unknown]
